FAERS Safety Report 17777302 (Version 1)
Quarter: 2020Q2

REPORT INFORMATION
  Report Type: Spontaneous
  Country: DE (occurrence: DE)
  Receive Date: 20200513
  Receipt Date: 20200513
  Transmission Date: 20200714
  Serious: Yes (Hospitalization)
  Sender: FDA-Public Use
  Company Number: DE-ACCORD-181608

PATIENT
  Age: 77 Year
  Sex: Female

DRUGS (11)
  1. SPIRONOLACTONE. [Suspect]
     Active Substance: SPIRONOLACTONE
     Indication: PRODUCT USED FOR UNKNOWN INDICATION
     Dosage: 50 MG, 0.5-0-0-0, TABLETS
  2. LERCANIDIPINE [Concomitant]
     Active Substance: LERCANIDIPINE
     Dosage: 10 MG, 0-0-1-0
  3. FLUVASTATIN [Concomitant]
     Active Substance: FLUVASTATIN SODIUM
     Dosage: 40 MG, 0-0-1-0, CAPSULES
  4. CETIRIZINE-ADGC [Concomitant]
     Dosage: 10 MG, 0-0-1-0, TABLETS
  5. EZETIMIBE. [Concomitant]
     Active Substance: EZETIMIBE
     Dosage: 10 MG, 0-0-1-0, TABLETS
  6. DIGITOXIN [Concomitant]
     Active Substance: DIGITOXIN
     Dosage: 0.07 MG, 1-0-0-0
  7. BISOPROLOL [Concomitant]
     Active Substance: BISOPROLOL
     Dosage: 10 MG, 1-0-0-0
  8. BUDESONIDE. [Concomitant]
     Active Substance: BUDESONIDE
     Dosage: 2-0-2-0, INHALATION POWDER
  9. FORMOTEROL [Suspect]
     Active Substance: FORMOTEROL
     Indication: PRODUCT USED FOR UNKNOWN INDICATION
     Dosage: 1-0-1-0, INHALATION POWDER
  10. COLECALCIFEROL [Concomitant]
     Active Substance: CHOLECALCIFEROL
     Dosage: 1000 IU, 1-0-0-0, TABLETS
  11. APIXABAN [Concomitant]
     Active Substance: APIXABAN
     Dosage: 5 MG, 1-0-1-0

REACTIONS (3)
  - Dyspnoea exertional [Recovered/Resolved]
  - Chest pain [Recovered/Resolved]
  - Muscle spasms [Recovered/Resolved]
